FAERS Safety Report 19943153 (Version 1)
Quarter: 2021Q4

REPORT INFORMATION
  Report Type: Report from Study
  Country: US (occurrence: US)
  Receive Date: 20211011
  Receipt Date: 20211011
  Transmission Date: 20220303
  Serious: Yes (Hospitalization)
  Sender: FDA-Public Use
  Company Number: US-JNJFOC-20211009094

PATIENT
  Age: 96 Year
  Sex: Female

DRUGS (4)
  1. MACITENTAN [Suspect]
     Active Substance: MACITENTAN
     Indication: Pulmonary arterial hypertension
     Route: 048
  2. ELIQUIS [Concomitant]
     Active Substance: APIXABAN
  3. WARFARIN [Concomitant]
     Active Substance: WARFARIN
  4. ADCIRCA [Concomitant]
     Active Substance: TADALAFIL

REACTIONS (4)
  - Upper respiratory tract infection [Unknown]
  - Dizziness [Unknown]
  - Paraesthesia [Unknown]
  - Sinusitis [Unknown]

NARRATIVE: CASE EVENT DATE: 20210926
